FAERS Safety Report 6305743-0 (Version None)
Quarter: 2009Q3

REPORT INFORMATION
  Report Type: 
  Country: None (occurrence: None)
  Receive Date: 20090812
  Receipt Date: 20070913
  Transmission Date: 20100115
  Serious: Yes (Hospitalization, Other)
  Sender: FDA-Public Use
  Company Number: US-ASTRAZENECA-2006UW25460

PATIENT
  Age: 17851 Day
  Sex: Female
  Weight: 99 kg

DRUGS (23)
  1. SEROQUEL [Suspect]
     Indication: BIPOLAR DISORDER
     Dosage: 25MG-400MG
     Route: 048
     Dates: start: 20020510
  2. SEROQUEL [Suspect]
     Indication: DEPRESSION
     Dosage: 25MG-400MG
     Route: 048
     Dates: start: 20020510
  3. ZIPRASIDONE HCL [Concomitant]
  4. HALOPERIDOL [Concomitant]
  5. RISPERIDONE [Concomitant]
  6. OLANZAPINE [Concomitant]
  7. MARIJUANA [Concomitant]
  8. PROZAC [Concomitant]
     Dates: start: 20010501
  9. ATIVAN [Concomitant]
     Dosage: 0.5MG-1MG
     Route: 048
     Dates: start: 20010501
  10. TRAZODONE HCL [Concomitant]
     Dosage: 100MG-300MG
     Route: 048
     Dates: start: 20020726
  11. KLONOPIN [Concomitant]
     Dosage: 0.5MG-2MG
     Dates: start: 20020726
  12. PREVACID [Concomitant]
     Indication: GASTROOESOPHAGEAL REFLUX DISEASE
     Dates: start: 20020726
  13. DEPAKOTE [Concomitant]
     Dosage: 250MG-2000MG
     Dates: start: 20031013
  14. NEURONTIN [Concomitant]
     Dates: start: 20031013
  15. AMITRIPTYLINE [Concomitant]
     Dates: start: 20040210
  16. GEODON [Concomitant]
     Dosage: 20MG-160MG
     Dates: start: 20050520
  17. EFFEXOR [Concomitant]
     Dosage: 37.5MG-75MG, DAILY
     Dates: start: 20060711
  18. RESTORIL [Concomitant]
     Dosage: 15MG AT NIGHT AS REQUIRIED
     Route: 048
     Dates: start: 20060711
  19. NEXIUM [Concomitant]
     Dates: start: 20070326
  20. LAMICTAL [Concomitant]
     Dosage: 25MG-50MG
     Route: 048
     Dates: start: 20070412
  21. PLAVIX [Concomitant]
     Route: 048
     Dates: start: 20070412
  22. ZOCOR [Concomitant]
     Route: 048
     Dates: start: 20070707
  23. IMDUR [Concomitant]
     Route: 048
     Dates: start: 20070707

REACTIONS (7)
  - DIABETES MELLITUS [None]
  - DIABETES MELLITUS INADEQUATE CONTROL [None]
  - DIABETIC GASTROPARESIS [None]
  - DIABETIC KETOACIDOSIS [None]
  - HYPERGLYCAEMIA [None]
  - TYPE 1 DIABETES MELLITUS [None]
  - TYPE 2 DIABETES MELLITUS [None]
